FAERS Safety Report 5923689-4 (Version None)
Quarter: 2008Q4

REPORT INFORMATION
  Report Type: 
  Country: None (occurrence: None)
  Receive Date: 20081020
  Receipt Date: 20081010
  Transmission Date: 20090506
  Serious: Yes (Hospitalization)
  Sender: FDA-Public Use
  Company Number: A0739947A

PATIENT
  Age: 62 Year
  Sex: Female
  Weight: 81.8 kg

DRUGS (22)
  1. AVANDIA [Suspect]
     Dosage: 8MG PER DAY
     Route: 048
     Dates: start: 20010607, end: 20070201
  2. LANTUS [Concomitant]
  3. AMARYL [Concomitant]
  4. BYETTA [Concomitant]
  5. ESTRADIOL [Concomitant]
  6. ALBUTEROL [Concomitant]
  7. FLOVENT [Concomitant]
  8. LIPITOR [Concomitant]
  9. VASOTEC [Concomitant]
  10. VIOXX [Concomitant]
  11. PAXIL [Concomitant]
  12. PROZAC [Concomitant]
  13. GLUCOVANCE [Concomitant]
  14. PROTONIX [Concomitant]
  15. ALLEGRA-D [Concomitant]
  16. ENALAPRIL MALEATE [Concomitant]
  17. HYDROCHLOROTHIAZIDE [Concomitant]
  18. BUPROPION HCL [Concomitant]
  19. BUPROPION HCL [Concomitant]
  20. VYTORIN [Concomitant]
  21. NEXIUM [Concomitant]
  22. FUROSEMIDE [Concomitant]

REACTIONS (1)
  - MYOCARDIAL INFARCTION [None]
